FAERS Safety Report 9785702 (Version 1)
Quarter: 2013Q4

REPORT INFORMATION
  Report Type: Spontaneous
  Country: US (occurrence: None)
  Receive Date: 20131226
  Receipt Date: 20131226
  Transmission Date: 20140711
  Serious: Yes (Life-Threatening, Hospitalization)
  Sender: FDA-Public Use
  Company Number: None

PATIENT
  Age: 65 Year
  Sex: Female
  Weight: 67.59 kg

DRUGS (6)
  1. LISINOPRIL [Suspect]
     Indication: HYPERTENSION
     Dosage: 20 MG  1 DAILY  MOUTH
     Route: 048
     Dates: start: 20130522, end: 20131203
  2. LEVETHYROXIN [Concomitant]
  3. PANTOPRAZOLE [Concomitant]
  4. ATORVASTATIN [Concomitant]
  5. AMLODIPINE [Concomitant]
  6. CALCIUM WITH VIT. D [Concomitant]

REACTIONS (6)
  - Cough [None]
  - Decreased appetite [None]
  - Dizziness [None]
  - Nausea [None]
  - Fatigue [None]
  - Weight decreased [None]
